FAERS Safety Report 9882412 (Version 2)
Quarter: 2014Q1

REPORT INFORMATION
  Report Type: Spontaneous
  Country: FR (occurrence: FR)
  Receive Date: 20140207
  Receipt Date: 20140221
  Transmission Date: 20141002
  Serious: Yes (Life-Threatening, Other)
  Sender: FDA-Public Use
  Company Number: FR-PFIZER INC-2014031529

PATIENT
  Age: 64 Year
  Sex: Female

DRUGS (7)
  1. TAHOR [Suspect]
     Dosage: 80 MG, DAILY
     Route: 048
     Dates: start: 201306, end: 20131123
  2. INIPOMP [Suspect]
     Dosage: 20 MG, DAILY
     Route: 048
     Dates: start: 20131119, end: 20131123
  3. DOMPERIDONE [Suspect]
     Indication: NAUSEA
     Dosage: 10 MG
     Dates: start: 20131119, end: 20131123
  4. DOMPERIDONE [Suspect]
     Indication: VOMITING
  5. KARDEGIC [Concomitant]
     Dosage: 75 MG, DAILY
     Dates: start: 2013
  6. NOVONORM [Concomitant]
     Dosage: 1 MG, 3X/DAY
     Dates: start: 2013
  7. LANTUS [Concomitant]
     Dosage: 12 IU, 1X/DAY (EVERY 24 HOURS)
     Dates: start: 2013

REACTIONS (6)
  - Rhabdomyolysis [Recovering/Resolving]
  - Cell death [Not Recovered/Not Resolved]
  - Cholestasis [Not Recovered/Not Resolved]
  - Hyponatraemia [Not Recovered/Not Resolved]
  - Hypoalbuminaemia [Not Recovered/Not Resolved]
  - Renal failure [Not Recovered/Not Resolved]
